FAERS Safety Report 8964122 (Version 1)
Quarter: 2012Q4

REPORT INFORMATION
  Report Type: 
  Country: US (occurrence: US)
  Receive Date: 20121214
  Receipt Date: 20121214
  Transmission Date: 20130627
  Serious: No
  Sender: FDA-Public Use
  Company Number: US-PFIZER INC-2012310278

PATIENT

DRUGS (2)
  1. AROMASIN [Suspect]
  2. TAMOXIFEN CITRATE [Suspect]

REACTIONS (3)
  - Myalgia [Unknown]
  - Arthralgia [Unknown]
  - Breast pain [Unknown]
